FAERS Safety Report 4882649-5 (Version None)
Quarter: 2006Q1

REPORT INFORMATION
  Report Type: 
  Country: None (occurrence: None)
  Receive Date: 20060117
  Receipt Date: 20060112
  Transmission Date: 20060701
  Serious: Yes (Hospitalization)
  Sender: FDA-Public Use
  Company Number: GB-MERCK-0601GBR00069

PATIENT
  Age: 69 Year
  Sex: Male

DRUGS (6)
  1. FOSAMAX [Suspect]
     Indication: OSTEOPOROSIS
     Route: 048
     Dates: end: 20051217
  2. ASPIRIN [Suspect]
     Route: 048
     Dates: end: 20051217
  3. CALCIUM CARBONATE AND CHOLECALCIFEROL [Concomitant]
     Route: 048
  4. ALBUTEROL SULFATE AND IPRATROPIUM BROMIDE [Concomitant]
     Indication: CHRONIC OBSTRUCTIVE PULMONARY DISEASE
     Route: 055
  5. SALMETEROL XINAFOATE [Concomitant]
     Indication: CHRONIC OBSTRUCTIVE PULMONARY DISEASE
     Route: 055
  6. SENNA [Concomitant]
     Indication: CONSTIPATION
     Route: 048

REACTIONS (8)
  - CONVULSION [None]
  - DUODENAL ULCER [None]
  - DUODENITIS [None]
  - FAECES DISCOLOURED [None]
  - GASTRITIS [None]
  - HAEMATEMESIS [None]
  - HIATUS HERNIA [None]
  - SYNCOPE [None]
